FAERS Safety Report 7514554-X (Version None)
Quarter: 2011Q2

REPORT INFORMATION
  Report Type: 
  Country: None (occurrence: None)
  Receive Date: 20110601
  Receipt Date: 20101221
  Transmission Date: 20111010
  Serious: No
  Sender: FDA-Public Use
  Company Number: US-BAYER-2010-009333

PATIENT
  Age: 63 Year
  Sex: Female

DRUGS (4)
  1. VITAMIN D [Concomitant]
  2. ULTRAVIST 150 [Suspect]
     Indication: COMPUTERISED TOMOGRAM THORAX
     Dosage: 75 ML, ONCE
     Route: 042
     Dates: start: 20101221, end: 20101221
  3. JANUMET [Concomitant]
  4. ASTATIN [Concomitant]

REACTIONS (1)
  - URTICARIA [None]
